FAERS Safety Report 19389644 (Version 1)
Quarter: 2021Q2

REPORT INFORMATION
  Report Type: Spontaneous
  Country: US (occurrence: US)
  Receive Date: 20210607
  Receipt Date: 20210607
  Transmission Date: 20210717
  Serious: No
  Sender: FDA-Public Use
  Company Number: None

PATIENT
  Sex: Female
  Weight: 58.5 kg

DRUGS (8)
  1. ATENOLOL 50 MG TAB [Concomitant]
  2. ACETAMINOPHEN 325 MG TAB [Concomitant]
  3. CLONIDINE 0.1 MG TAB [Concomitant]
     Active Substance: CLONIDINE HYDROCHLORIDE
  4. SIMVASTATIN 40 MG TAB [Concomitant]
  5. CAPECITABINE 150 MG TAB [Suspect]
     Active Substance: CAPECITABINE
     Route: 048
  6. CAPECITABINE 500 MG TAB [Suspect]
     Active Substance: CAPECITABINE
     Indication: COLON CANCER
     Route: 048
  7. AMLODIPINE [Concomitant]
     Active Substance: AMLODIPINE BESYLATE
  8. FERROUS 325 MG TAB [Concomitant]

REACTIONS (4)
  - Rash [None]
  - Erythema [None]
  - Skin exfoliation [None]
  - Skin erosion [None]
